FAERS Safety Report 11275683 (Version 1)
Quarter: 2015Q3

REPORT INFORMATION
  Report Type: Spontaneous
  Country: US (occurrence: None)
  Receive Date: 20150715
  Receipt Date: 20150715
  Transmission Date: 20151125
  Serious: No
  Sender: FDA-Public Use
  Company Number: None

PATIENT
  Age: 62 Year
  Sex: Male
  Weight: 121.56 kg

DRUGS (1)
  1. AMOX CLAV 1000/62.5 [Suspect]
     Active Substance: AMOXICILLIN\CLAVULANATE POTASSIUM
     Indication: SINUSITIS
     Dosage: 2 PILLS
     Route: 048
     Dates: start: 20150713

REACTIONS (6)
  - Paraesthesia [None]
  - Nightmare [None]
  - Abdominal pain upper [None]
  - Flushing [None]
  - Erythema [None]
  - Dizziness [None]

NARRATIVE: CASE EVENT DATE: 20150713
